FAERS Safety Report 19243714 (Version 2)
Quarter: 2021Q2

REPORT INFORMATION
  Report Type: Spontaneous
  Country: US (occurrence: US)
  Receive Date: 20210511
  Receipt Date: 20210604
  Transmission Date: 20210717
  Serious: Yes (Other)
  Sender: FDA-Public Use
  Company Number: US-ASTRAZENECA-2021A407428

PATIENT
  Age: 73 Year
  Sex: Female
  Weight: 69.9 kg

DRUGS (4)
  1. EYE DROPS [Concomitant]
     Active Substance: UNSPECIFIED INGREDIENT
     Route: 065
  2. BYDUREON BCISE [Suspect]
     Active Substance: EXENATIDE
     Indication: DIABETES MELLITUS
     Dosage: ONCE A WEEK
     Route: 065
     Dates: start: 20210502
  3. HUMULIN NOS [Concomitant]
     Active Substance: INSULIN HUMAN
     Route: 065
  4. BYETTA [Suspect]
     Active Substance: EXENATIDE
     Indication: TYPE 2 DIABETES MELLITUS
     Route: 058
     Dates: end: 20210430

REACTIONS (6)
  - Drug dose omission by device [Unknown]
  - Cataract [Unknown]
  - Blood glucose decreased [Recovered/Resolved]
  - Device malfunction [Unknown]
  - Device use issue [Unknown]
  - Device leakage [Unknown]

NARRATIVE: CASE EVENT DATE: 2021
